FAERS Safety Report 8259823-3 (Version None)
Quarter: 2012Q2

REPORT INFORMATION
  Report Type: 
  Country: None (occurrence: None)
  Receive Date: 20120404
  Receipt Date: 20120402
  Transmission Date: 20120825
  Serious: Yes (Congenital Anomaly)
  Sender: FDA-Public Use
  Company Number: US-GLAXOSMITHKLINE-A0679312A

PATIENT
  Sex: Male

DRUGS (2)
  1. PAXIL [Suspect]
     Indication: PRODUCT USED FOR UNKNOWN INDICATION
     Route: 064
  2. INSULIN [Concomitant]
     Indication: GESTATIONAL DIABETES
     Route: 064

REACTIONS (5)
  - ENCEPHALOPATHY [None]
  - ATRIAL SEPTAL DEFECT [None]
  - FOETAL EXPOSURE DURING PREGNANCY [None]
  - PORENCEPHALY [None]
  - MACROCEPHALY [None]
